FAERS Safety Report 18650736 (Version 7)
Quarter: 2022Q1

REPORT INFORMATION
  Report Type: Report from Study
  Country: JP (occurrence: JP)
  Receive Date: 20201223
  Receipt Date: 20220204
  Transmission Date: 20220423
  Serious: Yes (Death)
  Sender: FDA-Public Use
  Company Number: JP-ABBVIE-19K-087-3187172-00

PATIENT
  Age: 80 Year
  Sex: Female

DRUGS (9)
  1. CARBIDOPA\LEVODOPA [Suspect]
     Active Substance: CARBIDOPA\LEVODOPA
     Indication: Parkinson^s disease
     Dosage: MD: 5.3 ML?CD: 2.5 ML/HR IN TO 16 HRS?ED: 1 ML/UNIT IN TO 1
     Route: 050
     Dates: start: 20190912, end: 20200415
  2. CARBIDOPA\LEVODOPA [Suspect]
     Active Substance: CARBIDOPA\LEVODOPA
     Dosage: MD: 8.3 ML?CD: 0.9 ML/HR IN TO16 HRS?ED: 1 ML/UNIT IN TO 1
     Route: 050
     Dates: start: 20200415, end: 20200618
  3. CARBIDOPA, LEVODOPA AND ENTACAPONE [Concomitant]
     Active Substance: CARBIDOPA\ENTACAPONE\LEVODOPA
     Indication: Parkinson^s disease
     Route: 048
     Dates: start: 200401
  4. CARBIDOPA, LEVODOPA AND ENTACAPONE [Concomitant]
     Active Substance: CARBIDOPA\ENTACAPONE\LEVODOPA
     Route: 048
     Dates: end: 20200618
  5. DROXIDOPA [Concomitant]
     Active Substance: DROXIDOPA
     Indication: Parkinson^s disease
     Route: 048
     Dates: end: 20200618
  6. RASAGILINE MESYLATE [Concomitant]
     Active Substance: RASAGILINE MESYLATE
     Indication: Parkinson^s disease
     Route: 048
     Dates: end: 20200618
  7. DONEPEZIL HYDROCHLORIDE [Concomitant]
     Active Substance: DONEPEZIL HYDROCHLORIDE
     Indication: Product used for unknown indication
     Route: 048
     Dates: end: 20200618
  8. MAGNESIUM OXIDE [Concomitant]
     Active Substance: MAGNESIUM OXIDE
     Indication: Product used for unknown indication
     Route: 048
     Dates: end: 20200618
  9. TELMISARTAN [Concomitant]
     Active Substance: TELMISARTAN
     Indication: Product used for unknown indication
     Route: 048
     Dates: end: 20200618

REACTIONS (2)
  - Asphyxia [Fatal]
  - Device issue [Recovered/Resolved]

NARRATIVE: CASE EVENT DATE: 20191227
